FAERS Safety Report 8956900 (Version 1)
Quarter: 2012Q4

REPORT INFORMATION
  Report Type: 
  Country: JP (occurrence: JP)
  Receive Date: 20121211
  Receipt Date: 20121211
  Transmission Date: 20130627
  Serious: Yes (Other)
  Sender: FDA-Public Use
  Company Number: JP-ELI_LILLY_AND_COMPANY-JP201209000051

PATIENT
  Age: 70 Year
  Sex: Female

DRUGS (1)
  1. FORTEO [Suspect]
     Dosage: UNK
     Route: 058
     Dates: end: 201210

REACTIONS (6)
  - Breast cancer [Unknown]
  - Hypoaesthesia [Unknown]
  - Injection site bruising [Unknown]
  - Malaise [Unknown]
  - Nausea [Unknown]
  - Wrong technique in drug usage process [Unknown]
